FAERS Safety Report 23797137 (Version 1)
Quarter: 2024Q2

REPORT INFORMATION
  Report Type: Spontaneous
  Country: FR (occurrence: FR)
  Receive Date: 20240430
  Receipt Date: 20240430
  Transmission Date: 20240715
  Serious: Yes (Other)
  Sender: FDA-Public Use
  Company Number: None

PATIENT
  Age: 69 Year
  Sex: Female

DRUGS (1)
  1. KEYTRUDA [Suspect]
     Active Substance: PEMBROLIZUMAB
     Indication: Lung adenocarcinoma
     Dosage: 200 MILLIGRAM, EVERY 21 DAYS (Q3W), FORMULATION: CONCENTRATE FOR SOLUTION FOR INFUSION.
     Route: 042
     Dates: start: 202107, end: 20230907

REACTIONS (1)
  - Heerfordt^s syndrome [Not Recovered/Not Resolved]

NARRATIVE: CASE EVENT DATE: 20230901
